FAERS Safety Report 12396319 (Version 1)
Quarter: 2016Q2

REPORT INFORMATION
  Report Type: Spontaneous
  Country: US (occurrence: US)
  Receive Date: 20160524
  Receipt Date: 20160524
  Transmission Date: 20160815
  Serious: Yes (Hospitalization)
  Sender: FDA-Public Use
  Company Number: US-BEH-2016062938

PATIENT

DRUGS (1)
  1. HIZENTRA [Suspect]
     Active Substance: HUMAN IMMUNOGLOBULIN G
     Indication: PRODUCT USED FOR UNKNOWN INDICATION

REACTIONS (6)
  - Sinusitis [Unknown]
  - Nausea [Unknown]
  - Impaired gastric emptying [Unknown]
  - Thyroid mass [Unknown]
  - Nephrogenic systemic fibrosis [Unknown]
  - Weight decreased [Unknown]
